FAERS Safety Report 5623866-6 (Version None)
Quarter: 2008Q1

REPORT INFORMATION
  Report Type: 
  Country: None (occurrence: None)
  Receive Date: 20080207
  Receipt Date: 20080123
  Transmission Date: 20080703
  Serious: Yes (Hospitalization)
  Sender: FDA-Public Use
  Company Number: DSA_31115_2008

PATIENT
  Sex: Male

DRUGS (4)
  1. LORAZEPAM [Suspect]
     Dosage: NOT THE PRESCRIBED AMOUNT, ORAL, (DF ORAL)
     Route: 048
     Dates: start: 20071231, end: 20071231
  2. FRISIUM (FRISIUM -CLOBAZAM) (NOT SPECIFIED) [Suspect]
     Dosage: NOT THE PRESCRIBED AMOUNT
     Dates: start: 20071231, end: 20071231
  3. LAMOTRIGINE [Suspect]
     Dosage: 2000 MG 1X NOT THE PRESCRIBED AMOUNT. ORAL
     Route: 048
     Dates: start: 20071231, end: 20071231
  4. LAMICTAL [Suspect]
     Indication: GRAND MAL CONVULSION
     Dosage: DF ORAL
     Route: 048

REACTIONS (5)
  - AGITATION [None]
  - INTENTIONAL OVERDOSE [None]
  - PSYCHOTIC DISORDER [None]
  - SALIVARY HYPERSECRETION [None]
  - SUICIDE ATTEMPT [None]
